FAERS Safety Report 9735494 (Version 1)
Quarter: 2013Q4

REPORT INFORMATION
  Report Type: Spontaneous
  Country: US (occurrence: US)
  Receive Date: 20131206
  Receipt Date: 20131206
  Transmission Date: 20140711
  Serious: No
  Sender: FDA-Public Use
  Company Number: US-GILEAD-2009-0023346

PATIENT
  Sex: Female
  Weight: 69.85 kg

DRUGS (19)
  1. LETAIRIS [Suspect]
     Indication: PULMONARY ARTERIAL HYPERTENSION
     Route: 048
     Dates: start: 20090702
  2. REVATIO [Concomitant]
  3. WARFARIN [Concomitant]
  4. DIGOXIN [Concomitant]
  5. CALCIUM [Concomitant]
  6. STOOL SOFTENER [Concomitant]
  7. VITA-LEA [Concomitant]
  8. TORSEMIDE [Concomitant]
  9. VERAPAMIL [Concomitant]
  10. LOVENOX [Concomitant]
  11. DEMADEX [Concomitant]
  12. MULTIVITAMINS [Concomitant]
  13. LANOXIN [Concomitant]
  14. QUINAPRIL [Concomitant]
  15. KLOR-CON [Concomitant]
  16. B COMPLEX [Concomitant]
  17. HYDROCODONE [Concomitant]
  18. OXYCONTIN [Concomitant]
  19. BEANO [Concomitant]

REACTIONS (2)
  - Nasal congestion [Unknown]
  - Nasal congestion [Unknown]
